FAERS Safety Report 7346215-4 (Version None)
Quarter: 2011Q1

REPORT INFORMATION
  Report Type: 
  Country: None (occurrence: None)
  Receive Date: 20110311
  Receipt Date: 20110308
  Transmission Date: 20110831
  Serious: No
  Sender: FDA-Public Use
  Company Number: US-PFIZER INC-2011051205

PATIENT
  Sex: Male
  Weight: 77 kg

DRUGS (5)
  1. DARIFENACIN [Concomitant]
     Indication: PROSTATIC DISORDER
     Dosage: 15 MG, UNK
  2. LIPITOR [Suspect]
     Indication: BLOOD CHOLESTEROL INCREASED
     Dosage: 40 MG, DAILY
     Route: 048
     Dates: start: 20080401, end: 20110125
  3. CIALIS [Concomitant]
     Dosage: UNK, AS NEEDED
  4. CYMBALTA [Concomitant]
     Dosage: UNK
  5. METFORMIN [Concomitant]
     Indication: DIABETES MELLITUS
     Dosage: 500 MG, UNK

REACTIONS (4)
  - RASH GENERALISED [None]
  - SKIN DISORDER [None]
  - SKIN LESION [None]
  - SKIN MACERATION [None]
